FAERS Safety Report 20524755 (Version 2)
Quarter: 2022Q1

REPORT INFORMATION
  Report Type: Spontaneous
  Country: JP (occurrence: JP)
  Receive Date: 20220228
  Receipt Date: 20220328
  Transmission Date: 20220423
  Serious: Yes (Hospitalization, Other)
  Sender: FDA-Public Use
  Company Number: JP-ASTELLAS-2021JP009581

PATIENT
  Age: 27 Year
  Sex: Female
  Weight: 46 kg

DRUGS (8)
  1. PROGRAF [Suspect]
     Active Substance: TACROLIMUS
     Indication: Takayasu^s arteritis
     Route: 048
     Dates: start: 20150319, end: 20150520
  2. PROGRAF [Suspect]
     Active Substance: TACROLIMUS
     Route: 048
     Dates: start: 20150521
  3. PROGRAF [Suspect]
     Active Substance: TACROLIMUS
     Route: 048
     Dates: start: 20150625
  4. PROGRAF [Suspect]
     Active Substance: TACROLIMUS
     Indication: Takayasu^s arteritis
     Dosage: 0.5 MG, TWICE DAILY
     Route: 048
     Dates: start: 20150625
  5. PREDONINE [Suspect]
     Active Substance: PREDNISOLONE
     Indication: Takayasu^s arteritis
     Dosage: UNK UNK, UNKNOWN FREQ.
     Route: 065
     Dates: start: 2008
  6. PREDONINE [Suspect]
     Active Substance: PREDNISOLONE
     Route: 048
     Dates: start: 20110714
  7. PREDONINE [Suspect]
     Active Substance: PREDNISOLONE
     Route: 048
     Dates: start: 20161124
  8. ALENDRONIC ACID [Concomitant]
     Active Substance: ALENDRONIC ACID
     Indication: Prophylaxis
     Route: 048
     Dates: start: 20150416, end: 20200831

REACTIONS (4)
  - Oligohydramnios [Recovered/Resolved]
  - Blood pressure increased [Recovered/Resolved]
  - Off label use [Unknown]
  - Maternal exposure during pregnancy [Unknown]

NARRATIVE: CASE EVENT DATE: 20150319
